FAERS Safety Report 7916876-7 (Version None)
Quarter: 2011Q4

REPORT INFORMATION
  Report Type: 
  Country: None (occurrence: None)
  Receive Date: 20111114
  Receipt Date: 20111101
  Transmission Date: 20120403
  Serious: Yes (Life-Threatening)
  Sender: FDA-Public Use
  Company Number: TCI2011A03980

PATIENT
  Age: 62 Year
  Sex: Male

DRUGS (9)
  1. ASPIRIN [Concomitant]
  2. FAMOTIDINE [Concomitant]
  3. ATELEC (CILNIDIPINE) [Concomitant]
  4. ACTOS [Suspect]
     Indication: DIABETES MELLITUS
     Dosage: 15 MG (15 MG, 1 IN 1 D)
     Dates: start: 20060331, end: 20070819
  5. AMLODIN OD (AMLODIPINE  BESILATE) [Concomitant]
  6. BLOPRESS (CANDESARTAN CILEXETIL) [Concomitant]
  7. ASPIRIN [Concomitant]
  8. AMARYL [Concomitant]
  9. LANSOPRAZOLE [Concomitant]

REACTIONS (3)
  - BLADDER TRANSITIONAL CELL CARCINOMA [None]
  - GLYCOSYLATED HAEMOGLOBIN INCREASED [None]
  - BLOOD GLUCOSE INCREASED [None]
